FAERS Safety Report 19332964 (Version 1)
Quarter: 2021Q2

REPORT INFORMATION
  Report Type: Spontaneous
  Country: US (occurrence: US)
  Receive Date: 20210529
  Receipt Date: 20210529
  Transmission Date: 20210717
  Serious: No
  Sender: FDA-Public Use
  Company Number: US-UNITED THERAPEUTICS-UNT-2021-009079

PATIENT
  Sex: Female

DRUGS (4)
  1. REMODULIN [Suspect]
     Active Substance: TREPROSTINIL
     Dosage: 0.093 ?G/KG, CONTINUING
     Route: 058
  2. REMODULIN [Suspect]
     Active Substance: TREPROSTINIL
     Indication: PULMONARY ARTERIAL HYPERTENSION
     Dosage: UNK, CONTINUING
     Route: 058
     Dates: start: 20190322
  3. REMODULIN [Suspect]
     Active Substance: TREPROSTINIL
     Dosage: 0.0959 ?G/KG, CONTINUING
     Route: 058
  4. REMODULIN [Suspect]
     Active Substance: TREPROSTINIL
     Dosage: 0.0989 ?G/KG, CONTINUING
     Route: 058

REACTIONS (5)
  - Diarrhoea [Unknown]
  - Nausea [Unknown]
  - Device data issue [Recovered/Resolved]
  - Device use error [Recovered/Resolved]
  - Vomiting [Unknown]
